FAERS Safety Report 5815556-1 (Version None)
Quarter: 2008Q3

REPORT INFORMATION
  Report Type: 
  Country: None (occurrence: None)
  Receive Date: 20080716
  Receipt Date: 20080703
  Transmission Date: 20090109
  Serious: Yes (Hospitalization)
  Sender: FDA-Public Use
  Company Number: 2008AL004050

PATIENT
  Sex: Female

DRUGS (4)
  1. DIGOXIN [Suspect]
     Indication: PALPITATIONS
     Dosage: 0.25MG,QD,PO
     Route: 048
     Dates: start: 20071204, end: 20071230
  2. FUROSEMIDE [Concomitant]
  3. SPIRIVA [Concomitant]
  4. FLONASE [Concomitant]

REACTIONS (4)
  - CARDIOACTIVE DRUG LEVEL DECREASED [None]
  - DISEASE RECURRENCE [None]
  - INCORRECT DOSE ADMINISTERED [None]
  - PALPITATIONS [None]
